FAERS Safety Report 6310402-4 (Version None)
Quarter: 2009Q3

REPORT INFORMATION
  Report Type: 
  Country: None (occurrence: None)
  Receive Date: 20090814
  Receipt Date: 20090806
  Transmission Date: 20100115
  Serious: Yes (Hospitalization, Other)
  Sender: FDA-Public Use
  Company Number: FR-PFIZER INC-2009238746

PATIENT
  Age: 73 Year

DRUGS (6)
  1. TAHOR [Suspect]
     Indication: CORONARY ARTERY STENOSIS
     Dosage: 80 MG, 1X/DAY
     Route: 048
     Dates: start: 20090527
  2. TAHOR [Suspect]
     Dosage: 40 MG, UNK
     Route: 048
     Dates: start: 20090704
  3. FORTZAAR [Suspect]
     Dosage: 1 DF, UNK
     Dates: end: 20090101
  4. DILTIAZEM HCL [Concomitant]
     Dosage: 2 DF, UNK
     Dates: start: 20090527
  5. PLAVIX [Concomitant]
     Dosage: 1 DF, UNK
     Dates: start: 20090527
  6. KARDEGIC [Concomitant]

REACTIONS (1)
  - CRYSTAL ARTHROPATHY [None]
